FAERS Safety Report 9512235 (Version 1)
Quarter: 2013Q1

REPORT INFORMATION
  Report Type: Spontaneous
  Country: US (occurrence: None)
  Receive Date: 20130305
  Receipt Date: 20130305
  Transmission Date: 20140127
  Serious: No
  Sender: FDA-Public Use
  Company Number: 163-21880-12051577

PATIENT
  Age: 68 Year
  Sex: Male

DRUGS (2)
  1. REVLIMID [Suspect]
     Indication: PLASMA CELL MYELOMA
     Dosage: 10MG, 1 IN 1 D , PO
     Route: 048
     Dates: start: 201009
  2. VANCOMYCIN (VANCOMYCIN) (INJECTION FOR  INFUSION) [Concomitant]

REACTIONS (5)
  - Haemoglobin decreased [None]
  - Platelet count decreased [None]
  - Cough [None]
  - Bronchitis [None]
  - Fatigue [None]
